FAERS Safety Report 5491526-0 (Version None)
Quarter: 2007Q4

REPORT INFORMATION
  Report Type: 
  Country: None (occurrence: None)
  Receive Date: 20071022
  Receipt Date: 20071018
  Transmission Date: 20080405
  Serious: Yes (Life-Threatening)
  Sender: FDA-Public Use
  Company Number: PHBS2007JP17394

PATIENT
  Age: 73 Year
  Sex: Male

DRUGS (2)
  1. LASIX [Concomitant]
  2. DIOVAN [Suspect]
     Indication: HYPERTENSION
     Route: 048
     Dates: end: 20070917

REACTIONS (5)
  - AGRANULOCYTOSIS [None]
  - C-REACTIVE PROTEIN INCREASED [None]
  - NEUTROPHIL COUNT DECREASED [None]
  - PYREXIA [None]
  - WHITE BLOOD CELL COUNT DECREASED [None]
